FAERS Safety Report 12347618 (Version 1)
Quarter: 2016Q2

REPORT INFORMATION
  Report Type: Spontaneous
  Country: IT (occurrence: IT)
  Receive Date: 20160509
  Receipt Date: 20160509
  Transmission Date: 20160815
  Serious: Yes (Other)
  Sender: FDA-Public Use
  Company Number: IT-SA-2016SA087531

PATIENT
  Age: 34 Year
  Sex: Female

DRUGS (6)
  1. RANITIDINE. [Concomitant]
     Active Substance: RANITIDINE
     Route: 048
     Dates: start: 20160113, end: 20160115
  2. SOLU-MEDROL [Concomitant]
     Active Substance: METHYLPREDNISOLONE SODIUM SUCCINATE
     Route: 042
     Dates: start: 20160113, end: 20160115
  3. ACYCLOVIR. [Concomitant]
     Active Substance: ACYCLOVIR
     Route: 048
     Dates: start: 20160113, end: 20160115
  4. ALEMTUZUMAB [Suspect]
     Active Substance: ALEMTUZUMAB
     Indication: MULTIPLE SCLEROSIS
     Route: 042
     Dates: start: 20160113, end: 20160115
  5. TRIMETON [Concomitant]
     Active Substance: CHLORPHENIRAMINE MALEATE
     Dosage: DOSAGE: 1 UNIT DOSE
     Route: 042
     Dates: start: 20160113, end: 20160115
  6. TACHIPIRINA [Concomitant]
     Active Substance: ACETAMINOPHEN
     Route: 048
     Dates: start: 20160113, end: 20160115

REACTIONS (5)
  - Electrocardiogram QT prolonged [Recovered/Resolved]
  - Pyrexia [Recovered/Resolved]
  - Pallor [Recovered/Resolved]
  - Bradycardia [Recovered/Resolved]
  - Dizziness [Recovered/Resolved]

NARRATIVE: CASE EVENT DATE: 20160113
